FAERS Safety Report 12356603 (Version 2)
Quarter: 2016Q2

REPORT INFORMATION
  Report Type: Spontaneous
  Country: BR (occurrence: BR)
  Receive Date: 20160511
  Receipt Date: 20160517
  Transmission Date: 20160815
  Serious: Yes (Life-Threatening, Hospitalization, Other)
  Sender: FDA-Public Use
  Company Number: BR-ALEXION PHARMACEUTICALS INC-A201603326

PATIENT
  Age: 40 Year
  Sex: Female

DRUGS (2)
  1. SOLIRIS [Suspect]
     Active Substance: ECULIZUMAB
     Indication: PAROXYSMAL NOCTURNAL HAEMOGLOBINURIA
     Dosage: 600 MG, QW
     Route: 042
     Dates: start: 20160308, end: 20160329
  2. SOLIRIS [Suspect]
     Active Substance: ECULIZUMAB
     Dosage: 900 MG, Q2W
     Route: 042
     Dates: start: 20160405

REACTIONS (8)
  - Haemolysis [Not Recovered/Not Resolved]
  - General physical health deterioration [Unknown]
  - Hepatic cirrhosis [Unknown]
  - Pulmonary embolism [Recovering/Resolving]
  - Hepatic failure [Unknown]
  - Acute pulmonary oedema [Recovering/Resolving]
  - Hypervolaemia [Recovering/Resolving]
  - Ascites [Unknown]

NARRATIVE: CASE EVENT DATE: 2016
